FAERS Safety Report 4959058-3 (Version None)
Quarter: 2006Q1

REPORT INFORMATION
  Report Type: 
  Country: None (occurrence: None)
  Receive Date: 20060328
  Receipt Date: 20060310
  Transmission Date: 20060701
  Serious: Yes (Hospitalization, Other)
  Sender: FDA-Public Use
  Company Number: 2006-00575

PATIENT
  Sex: Female

DRUGS (1)
  1. VELCADE [Suspect]

REACTIONS (2)
  - DRUG TOXICITY [None]
  - PNEUMONIA [None]
